FAERS Safety Report 16660168 (Version 2)
Quarter: 2019Q3

REPORT INFORMATION
  Report Type: Report from Study
  Country: CN (occurrence: CN)
  Receive Date: 20190802
  Receipt Date: 20190819
  Transmission Date: 20191004
  Serious: Yes (Other)
  Sender: FDA-Public Use
  Company Number: CN-AUROBINDO-AUR-APL-2019-045769

PATIENT

DRUGS (6)
  1. MELPHALAN INJECTION [Suspect]
     Active Substance: MELPHALAN
     Dosage: 30 MICROGRAM (LEFT EYE)
  2. MELPHALAN INJECTION [Suspect]
     Active Substance: MELPHALAN
     Dosage: 30 MICROGRAM (RIGHT EYE)
  3. MELPHALAN INJECTION [Suspect]
     Active Substance: MELPHALAN
     Dosage: 30 MICROGRAM (RIGHT EYE)
  4. MELPHALAN INJECTION [Suspect]
     Active Substance: MELPHALAN
     Indication: RETINOBLASTOMA
     Dosage: 0.1 MILLILITER (20-40 MICROGRAM)
  5. ATROPINE. [Concomitant]
     Active Substance: ATROPINE
     Indication: MYDRIASIS
     Dosage: UNK
     Route: 065
  6. MELPHALAN INJECTION [Suspect]
     Active Substance: MELPHALAN
     Dosage: 35 MICROGRAM (RIGHT EYE)

REACTIONS (3)
  - Product use issue [Unknown]
  - Hypotony of eye [Unknown]
  - Product use in unapproved indication [Unknown]
